FAERS Safety Report 10085276 (Version 2)
Quarter: 2014Q2

REPORT INFORMATION
  Report Type: Spontaneous
  Country: US (occurrence: US)
  Receive Date: 20140417
  Receipt Date: 20140417
  Transmission Date: 20141212
  Serious: Yes (Other)
  Sender: FDA-Public Use
  Company Number: US-RB-055390-13

PATIENT
  Age: 33 Year
  Sex: Female
  Weight: 103 kg

DRUGS (1)
  1. GENERIC BUPRENORPHINE [Suspect]
     Indication: DRUG DEPENDENCE
     Route: 065
     Dates: start: 20130527

REACTIONS (3)
  - Maternal exposure during pregnancy [Recovered/Resolved]
  - Weight decreased [Recovered/Resolved]
  - Amniotic fluid volume decreased [Recovered/Resolved]
